FAERS Safety Report 9771994 (Version 1)
Quarter: 2013Q4

REPORT INFORMATION
  Report Type: Spontaneous
  Country: US (occurrence: US)
  Receive Date: 20131219
  Receipt Date: 20131219
  Transmission Date: 20140711
  Serious: Yes (Disabling, Other)
  Sender: FDA-Public Use
  Company Number: US-SA-2013SA132440

PATIENT
  Sex: Female

DRUGS (4)
  1. LANTUS SOLOSTAR [Suspect]
     Route: 065
  2. NOVOLOG [Suspect]
     Route: 065
  3. LANTUS [Suspect]
     Route: 065
  4. SOLOSTAR [Concomitant]

REACTIONS (3)
  - Eye disorder [Unknown]
  - Disability [Unknown]
  - Stress [Unknown]
